FAERS Safety Report 21409318 (Version 2)
Quarter: 2022Q4

REPORT INFORMATION
  Report Type: Spontaneous
  Country: US (occurrence: US)
  Receive Date: 20221004
  Receipt Date: 20221020
  Transmission Date: 20230113
  Serious: Yes (Hospitalization, Other)
  Sender: FDA-Public Use
  Company Number: US-PFIZER INC-PV202200066464

PATIENT
  Age: 67 Year
  Sex: Male
  Weight: 74.83 kg

DRUGS (4)
  1. CORTEF [Suspect]
     Active Substance: HYDROCORTISONE
     Indication: Hypothalamo-pituitary disorder
     Dosage: 30 MG
     Dates: start: 197707
  2. CORTEF [Suspect]
     Active Substance: HYDROCORTISONE
     Indication: Hypothalamo-pituitary disorder
  3. SYNTHROID [Concomitant]
     Active Substance: LEVOTHYROXINE SODIUM
     Dosage: UNK
  4. TESTOSTERONE [Concomitant]
     Active Substance: TESTOSTERONE
     Dosage: UNK

REACTIONS (6)
  - Weight decreased [Unknown]
  - Alopecia [Unknown]
  - Slow speech [Unknown]
  - Asthenia [Unknown]
  - Somnolence [Unknown]
  - Sexual dysfunction [Unknown]
